FAERS Safety Report 16251339 (Version 2)
Quarter: 2019Q2

REPORT INFORMATION
  Report Type: Spontaneous
  Country: US (occurrence: US)
  Receive Date: 20190429
  Receipt Date: 20190614
  Transmission Date: 20190711
  Serious: No
  Sender: FDA-Public Use
  Company Number: US-JNJFOC-20190418202

PATIENT
  Sex: Female
  Weight: 61.69 kg

DRUGS (2)
  1. DURAGESIC [Suspect]
     Active Substance: FENTANYL
     Indication: BONE PAIN
     Route: 062
     Dates: end: 20190409
  2. DURAGESIC [Suspect]
     Active Substance: FENTANYL
     Indication: BONE PAIN
     Route: 062

REACTIONS (2)
  - Back pain [Recovered/Resolved with Sequelae]
  - Product dose omission [Unknown]
